FAERS Safety Report 6056283-8 (Version None)
Quarter: 2009Q1

REPORT INFORMATION
  Report Type: 
  Country: None (occurrence: None)
  Receive Date: 20090129
  Receipt Date: 20090116
  Transmission Date: 20090719
  Serious: No
  Sender: FDA-Public Use
  Company Number: CA-ASTRAZENECA-2009UW01410

PATIENT
  Age: 75 Year
  Sex: Female
  Weight: 153 kg

DRUGS (7)
  1. NEXIUM [Suspect]
     Route: 048
  2. PARIET [Suspect]
     Route: 065
  3. ATENOLOL [Concomitant]
  4. CITALOPRAM [Concomitant]
  5. HYDROCHLOROTHIAZIDE [Concomitant]
  6. OXAZEPAM [Concomitant]
  7. PERCOCET [Concomitant]

REACTIONS (2)
  - CONDITION AGGRAVATED [None]
  - DRUG INEFFECTIVE [None]
